FAERS Safety Report 19072019 (Version 1)
Quarter: 2021Q1

REPORT INFORMATION
  Report Type: Spontaneous
  Country: CO (occurrence: CO)
  Receive Date: 20210330
  Receipt Date: 20210330
  Transmission Date: 20210420
  Serious: Yes (Death, Other)
  Sender: FDA-Public Use
  Company Number: CO-MSNLABS-2021MSNSPO00078

PATIENT

DRUGS (5)
  1. ABIRATERONE ACETATE TABLETS 250MG [Suspect]
     Active Substance: ABIRATERONE ACETATE
     Indication: PROSTATE CANCER
     Route: 048
     Dates: start: 202012, end: 20210303
  2. OXICODONA 10 MG [Suspect]
     Active Substance: OXYCODONE
     Indication: PRODUCT USED FOR UNKNOWN INDICATION
     Route: 048
     Dates: end: 202103
  3. OMEPRAZOL 20 MG [Suspect]
     Active Substance: OMEPRAZOLE
     Indication: PRODUCT USED FOR UNKNOWN INDICATION
     Route: 048
     Dates: end: 202103
  4. MORFIN [MORPHINE] [Suspect]
     Active Substance: MORPHINE
     Indication: PRODUCT USED FOR UNKNOWN INDICATION
     Dosage: 12 DROPS EVERY 4 HOURS
     Route: 048
     Dates: end: 202103
  5. CALCIUM ACETATE. [Suspect]
     Active Substance: CALCIUM ACETATE
     Indication: PRODUCT USED FOR UNKNOWN INDICATION
     Route: 048
     Dates: end: 202103

REACTIONS (4)
  - Disease progression [Fatal]
  - Metastases to bone [Fatal]
  - Metastases to central nervous system [Fatal]
  - Respiratory arrest [Fatal]
